FAERS Safety Report 4932850-7 (Version None)
Quarter: 2006Q1

REPORT INFORMATION
  Report Type: 
  Country: None (occurrence: None)
  Receive Date: 20060306
  Receipt Date: 20060213
  Transmission Date: 20060701
  Serious: No
  Sender: FDA-Public Use
  Company Number: US-AMGEN-US168615

PATIENT
  Sex: Male

DRUGS (5)
  1. NEULASTA - PREFILLED SYRINGE [Suspect]
     Indication: CHEMOTHERAPY
     Route: 058
     Dates: start: 20060212
  2. CLADRIBINE [Suspect]
     Route: 042
     Dates: start: 20060206, end: 20060210
  3. ARANESP [Concomitant]
     Indication: ANAEMIA OF MALIGNANT DISEASE
     Route: 058
     Dates: start: 20060207
  4. ANTIBIOTICS [Concomitant]
     Dates: start: 20060201
  5. ALLOPURINOL [Concomitant]
     Dates: start: 20060204, end: 20060217

REACTIONS (2)
  - RASH MACULO-PAPULAR [None]
  - RASH PRURITIC [None]
